FAERS Safety Report 13479039 (Version 1)
Quarter: 2020Q3

REPORT INFORMATION
  Report Type: Report from Study
  Country: IL (occurrence: IL)
  Receive Date: 20170425
  Receipt Date: 20170425
  Transmission Date: 20201105
  Serious: Yes (Hospitalization)
  Sender: FDA-Public Use
  Company Number: IL-JNJFOC-20170406630

PATIENT
  Age: 57 Year
  Sex: Male
  Weight: 84.35 kg

DRUGS (17)
  1. NIRAPARIB [Suspect]
     Active Substance: NIRAPARIB
     Indication: COLORECTAL CANCER
     Route: 048
     Dates: start: 20110208, end: 20110221
  2. NIRAPARIB [Suspect]
     Active Substance: NIRAPARIB
     Indication: COLORECTAL CANCER
     Route: 048
     Dates: start: 20110111, end: 20110124
  3. NIRAPARIB [Suspect]
     Active Substance: NIRAPARIB
     Indication: COLORECTAL CANCER
     Route: 048
     Dates: start: 20110109, end: 20110110
  4. DOXIL [Suspect]
     Active Substance: DOXORUBICIN HYDROCHLORIDE
     Indication: COLORECTAL CANCER
     Route: 042
     Dates: start: 20110308, end: 20110308
  5. FLUTIN [Concomitant]
     Dates: start: 201001
  6. NIRAPARIB [Suspect]
     Active Substance: NIRAPARIB
     Indication: COLORECTAL CANCER
     Route: 048
     Dates: start: 20110206, end: 20110207
  7. DOXIL [Suspect]
     Active Substance: DOXORUBICIN HYDROCHLORIDE
     Indication: COLORECTAL CANCER
     Route: 042
     Dates: start: 20110111, end: 20110111
  8. DOXIL [Suspect]
     Active Substance: DOXORUBICIN HYDROCHLORIDE
     Indication: COLORECTAL CANCER
     Route: 042
     Dates: start: 20110208, end: 20110208
  9. LORIVAN [Concomitant]
     Dates: start: 201003
  10. CLONAZEPAM. [Concomitant]
     Active Substance: CLONAZEPAM
     Dates: start: 200709
  11. VASOTEC [Concomitant]
     Active Substance: ENALAPRIL MALEATE
     Dates: start: 199501, end: 20110308
  12. OMEPRADEX [Concomitant]
     Active Substance: OMEPRAZOLE
     Dates: start: 20101213, end: 20110413
  13. DISOTHIAZIDE [Concomitant]
     Active Substance: HYDROCHLOROTHIAZIDE
     Dates: start: 200001, end: 20110308
  14. BONDORMIN [Concomitant]
     Active Substance: BROTIZOLAM
     Dates: start: 201003
  15. SIMVASTATIN. [Concomitant]
     Active Substance: SIMVASTATIN
     Dates: start: 201001
  16. NIRAPARIB [Suspect]
     Active Substance: NIRAPARIB
     Indication: COLORECTAL CANCER
     Route: 048
     Dates: start: 20110306, end: 20110307
  17. NIRAPARIB [Suspect]
     Active Substance: NIRAPARIB
     Indication: COLORECTAL CANCER
     Route: 048
     Dates: start: 20110308, end: 20110321

REACTIONS (2)
  - Gastric ulcer [Unknown]
  - Epistaxis [Recovered/Resolved]

NARRATIVE: CASE EVENT DATE: 20110109
